FAERS Safety Report 8554231-X (Version None)
Quarter: 2012Q3

REPORT INFORMATION
  Report Type: 
  Country: None (occurrence: None)
  Receive Date: 20120731
  Receipt Date: 20120716
  Transmission Date: 20120928
  Serious: No
  Sender: FDA-Public Use
  Company Number: US-ASTRAZENECA-2012SE49169

PATIENT
  Age: 74 Year
  Sex: Female
  Weight: 95.3 kg

DRUGS (6)
  1. ERYTHROMYCIN [Concomitant]
  2. NAPROXEN [Concomitant]
  3. SYMBICORT [Suspect]
     Dosage: 2 PUFFS BID
     Route: 055
     Dates: start: 20120707
  4. NITROGLYCERIN [Concomitant]
  5. ACID DRUGS [Concomitant]
  6. SYMBICORT [Suspect]
     Indication: PULMONARY FIBROSIS
     Dosage: 1 PUFF DAILY
     Route: 055
     Dates: start: 20120707

REACTIONS (3)
  - ORAL PAIN [None]
  - OFF LABEL USE [None]
  - GINGIVAL DISCOLOURATION [None]
